FAERS Safety Report 8964744 (Version 1)
Quarter: 2012Q4

REPORT INFORMATION
  Report Type: Report from Study
  Country: CA (occurrence: CA)
  Receive Date: 20121213
  Receipt Date: 20121213
  Transmission Date: 20130627
  Serious: Yes (Life-Threatening)
  Sender: FDA-Public Use
  Company Number: CA-PFIZER INC-2012309847

PATIENT
  Age: 48 Year
  Sex: Female

DRUGS (4)
  1. ADRIAMYCIN [Suspect]
     Indication: BREAST CANCER
     Dosage: 15x
  2. TRIPTORELIN [Suspect]
     Indication: BREAST CANCER
     Dosage: 3.75 mg, UNK
     Route: 030
     Dates: start: 20070813
  3. PACLITAXEL [Suspect]
     Indication: BREAST CANCER
     Dosage: 6x
  4. CYCLOPHOSPHAMIDE [Suspect]
     Indication: BREAST CANCER
     Dosage: 15x

REACTIONS (1)
  - Deep vein thrombosis [Recovered/Resolved]
